FAERS Safety Report 18811963 (Version 1)
Quarter: 2021Q1

REPORT INFORMATION
  Report Type: Spontaneous
  Country: US (occurrence: US)
  Receive Date: 20210130
  Receipt Date: 20210130
  Transmission Date: 20210419
  Serious: Yes (Other)
  Sender: FDA-Public Use
  Company Number: US-DRREDDYS-USA/USA/21/0131308

PATIENT
  Age: 69 Year
  Sex: Female
  Weight: 116.55 kg

DRUGS (6)
  1. B12 VITAMINS [Concomitant]
     Indication: PRODUCT USED FOR UNKNOWN INDICATION
  2. CLOPIDOGREL BISULFATE 75 MG [Suspect]
     Active Substance: CLOPIDOGREL BISULFATE
     Indication: MYOCARDIAL INFARCTION
     Dosage: 1 TABLET BY MOUTH DAILY
     Route: 048
     Dates: start: 201911
  3. POTASSIUM [Concomitant]
     Active Substance: POTASSIUM
     Indication: PRODUCT USED FOR UNKNOWN INDICATION
     Route: 048
  4. LOSARTAN. [Concomitant]
     Active Substance: LOSARTAN
     Indication: PRODUCT USED FOR UNKNOWN INDICATION
  5. CHEWABLE ASPIRIN 81 MG [Concomitant]
     Indication: PRODUCT USED FOR UNKNOWN INDICATION
  6. D3 VITAMINS [Concomitant]
     Indication: PRODUCT USED FOR UNKNOWN INDICATION

REACTIONS (3)
  - Underdose [Unknown]
  - Product coating issue [Unknown]
  - Drug ineffective [Unknown]
